FAERS Safety Report 13284399 (Version 2)
Quarter: 2017Q1

REPORT INFORMATION
  Report Type: Report from Study
  Country: US (occurrence: US)
  Receive Date: 20170301
  Receipt Date: 20170321
  Transmission Date: 20170428
  Serious: Yes (Other)
  Sender: FDA-Public Use
  Company Number: US-JNJFOC-20160121522

PATIENT
  Age: 80 Year
  Sex: Female

DRUGS (12)
  1. DEXAMETHASONE. [Concomitant]
     Active Substance: DEXAMETHASONE
  2. IMBRUVICA [Suspect]
     Active Substance: IBRUTINIB
     Indication: MANTLE CELL LYMPHOMA
     Route: 048
     Dates: start: 20140129
  3. IMBRUVICA [Suspect]
     Active Substance: IBRUTINIB
     Indication: MANTLE CELL LYMPHOMA
     Route: 048
     Dates: start: 20140203
  4. SODIUM CHLORIDE. [Concomitant]
     Active Substance: SODIUM CHLORIDE
     Route: 065
  5. IMBRUVICA [Suspect]
     Active Substance: IBRUTINIB
     Indication: MANTLE CELL LYMPHOMA
     Route: 048
     Dates: start: 2016, end: 201703
  6. RITUXIMAB [Concomitant]
     Active Substance: RITUXIMAB
     Dosage: 700 MG, (375MG/M2)
     Route: 065
  7. BENDAMUSTINE [Concomitant]
     Active Substance: BENDAMUSTINE
     Dosage: 125 MG, (70MG/M2) 30 MIN.INFUSION
     Route: 065
  8. BENADRYL [Concomitant]
     Active Substance: DIPHENHYDRAMINE HYDROCHLORIDE
     Route: 065
  9. LORAZEPAM. [Concomitant]
     Active Substance: LORAZEPAM
  10. METHYLPREDNISOLONE SODIUM SUCCINATE. [Concomitant]
     Active Substance: METHYLPREDNISOLONE SODIUM SUCCINATE
     Dosage: 62.5 MG/ML, UNK
     Route: 065
  11. ZOFRAN [Concomitant]
     Active Substance: ONDANSETRON HYDROCHLORIDE
     Route: 065
  12. PETHIDINE [Concomitant]
     Active Substance: MEPERIDINE
     Dosage: 25 MG/ML, UNK
     Route: 065

REACTIONS (43)
  - Weight increased [Not Recovered/Not Resolved]
  - Muscle spasms [Not Recovered/Not Resolved]
  - Neck pain [Recovered/Resolved]
  - Asthenia [Not Recovered/Not Resolved]
  - Dysphagia [Not Recovered/Not Resolved]
  - Nodule [Unknown]
  - Hypoaesthesia [Unknown]
  - Sneezing [Not Recovered/Not Resolved]
  - Oropharyngeal discomfort [Unknown]
  - Pleural adhesion [Recovered/Resolved]
  - Allergy to chemicals [Not Recovered/Not Resolved]
  - Tendonitis [Unknown]
  - Petechiae [Not Recovered/Not Resolved]
  - Rash macular [Recovering/Resolving]
  - Dyspnoea [Not Recovered/Not Resolved]
  - Chills [Recovered/Resolved]
  - Diarrhoea [Not Recovered/Not Resolved]
  - Increased upper airway secretion [Unknown]
  - Nail growth abnormal [Recovering/Resolving]
  - Hyperhidrosis [Not Recovered/Not Resolved]
  - Cystitis [Unknown]
  - Myalgia [Not Recovered/Not Resolved]
  - Arthropathy [Not Recovered/Not Resolved]
  - Balance disorder [Not Recovered/Not Resolved]
  - Onychoclasis [Recovering/Resolving]
  - Tremor [Recovered/Resolved]
  - Lung disorder [Recovering/Resolving]
  - Skin disorder [Recovered/Resolved]
  - Fatigue [Not Recovered/Not Resolved]
  - Contusion [Recovering/Resolving]
  - Arthralgia [Not Recovered/Not Resolved]
  - Mucous stools [Unknown]
  - Cerebrovascular accident [Unknown]
  - Depression [Recovering/Resolving]
  - Communication disorder [Not Recovered/Not Resolved]
  - Skin haemorrhage [Recovering/Resolving]
  - Dizziness [Recovered/Resolved]
  - Mental impairment [Not Recovered/Not Resolved]
  - Confusional state [Recovering/Resolving]
  - Withdrawal syndrome [Recovered/Resolved]
  - Energy increased [Not Recovered/Not Resolved]
  - Pyrexia [Recovered/Resolved]
  - Malaise [Unknown]

NARRATIVE: CASE EVENT DATE: 201402
